FAERS Safety Report 4383817-1 (Version None)
Quarter: 2004Q2

REPORT INFORMATION
  Report Type: 
  Country: None (occurrence: None)
  Receive Date: 20040608
  Receipt Date: 20031103
  Transmission Date: 20050107
  Serious: Yes (Hospitalization, Other)
  Sender: FDA-Public Use
  Company Number: 200314048BCC

PATIENT
  Age: 75 Year
  Sex: Female
  Weight: 99.7913 kg

DRUGS (3)
  1. ALEVE (CAPLET) [Suspect]
     Indication: ARTHRITIS
     Dosage: 220 MG, TIW, ORAL
     Route: 048
  2. PANTOPRAZOLE SODIUM [Concomitant]
  3. VICODIN [Concomitant]

REACTIONS (2)
  - ASTHENIA [None]
  - GASTROINTESTINAL ULCER HAEMORRHAGE [None]
